FAERS Safety Report 6836746-5 (Version None)
Quarter: 2010Q3

REPORT INFORMATION
  Report Type: 
  Country: None (occurrence: None)
  Receive Date: 20100713
  Receipt Date: 20100708
  Transmission Date: 20110219
  Serious: Yes (Death)
  Sender: FDA-Public Use
  Company Number: US-ABBOTT-10P-163-0655769-00

PATIENT

DRUGS (1)
  1. HUMIRA [Suspect]
     Indication: JUVENILE ARTHRITIS

REACTIONS (1)
  - MALAISE [None]
